FAERS Safety Report 25863128 (Version 1)
Quarter: 2025Q3

REPORT INFORMATION
  Report Type: Spontaneous
  Country: NI (occurrence: NI)
  Receive Date: 20250930
  Receipt Date: 20250930
  Transmission Date: 20251020
  Serious: Yes (Hospitalization)
  Sender: ACCORD
  Company Number: NI-MLMSERVICE-20250909-PI640392-00082-1

PATIENT
  Age: 63 Year
  Sex: Female

DRUGS (3)
  1. CARBOPLATIN [Suspect]
     Active Substance: CARBOPLATIN
     Indication: Lung adenocarcinoma stage IV
  2. PEMETREXED [Suspect]
     Active Substance: PEMETREXED
     Indication: Lung adenocarcinoma stage IV
  3. OSIMERTINIB [Suspect]
     Active Substance: OSIMERTINIB
     Indication: Lung adenocarcinoma stage IV

REACTIONS (6)
  - Gastrointestinal toxicity [Recovered/Resolved]
  - Blood creatinine increased [Recovered/Resolved]
  - Tachyarrhythmia [Recovering/Resolving]
  - Electrocardiogram ST segment elevation [Recovering/Resolving]
  - Ventricular extrasystoles [Recovering/Resolving]
  - Cardiac failure acute [Recovering/Resolving]
